FAERS Safety Report 8816289 (Version 3)
Quarter: 2012Q4

REPORT INFORMATION
  Report Type: 
  Country: AU (occurrence: AU)
  Receive Date: 20121001
  Receipt Date: 20121214
  Transmission Date: 20130627
  Serious: Yes (Other)
  Sender: FDA-Public Use
  Company Number: AU-009507513-2012SP020598

PATIENT
  Age: 56 Year
  Sex: Male
  Weight: 85 kg

DRUGS (5)
  1. VICTRELIS [Suspect]
     Dosage: 800 mg, TID
     Route: 048
     Dates: start: 20120326, end: 20120725
  2. PEGATRON [Suspect]
     Dosage: Peg-Intron: 130 Microgram, qw
     Route: 058
     Dates: start: 20120227, end: 20120725
  3. PEGATRON [Suspect]
     Dosage: Ribavirin: 200 mg, tid
     Route: 048
  4. INDERAL [Concomitant]
     Dosage: 40 mg, bid
  5. PANADOL [Concomitant]

REACTIONS (6)
  - Lip and/or oral cavity cancer [Not Recovered/Not Resolved]
  - Tongue neoplasm malignant stage unspecified [Unknown]
  - Dysgeusia [Recovered/Resolved]
  - Oral disorder [Unknown]
  - Drug ineffective [Unknown]
  - No therapeutic response [Unknown]
